FAERS Safety Report 5726780-0 (Version None)
Quarter: 2008Q2

REPORT INFORMATION
  Report Type: 
  Country: None (occurrence: None)
  Receive Date: 20080502
  Receipt Date: 20080425
  Transmission Date: 20081010
  Serious: Yes (Hospitalization)
  Sender: FDA-Public Use
  Company Number: JP-BRISTOL-MYERS SQUIBB COMPANY-14171409

PATIENT
  Age: 69 Year
  Sex: Female

DRUGS (13)
  1. TAXOL [Suspect]
     Indication: NON-SMALL CELL LUNG CANCER
     Route: 041
     Dates: start: 20071120, end: 20080313
  2. PARAPLATIN [Suspect]
     Indication: NON-SMALL CELL LUNG CANCER
     Route: 041
     Dates: start: 20071120, end: 20080313
  3. AVASTIN [Suspect]
     Indication: NON-SMALL CELL LUNG CANCER
     Route: 041
     Dates: start: 20071120
  4. ADALAT [Concomitant]
     Route: 048
     Dates: start: 20030101
  5. BIOTIN [Concomitant]
     Route: 048
     Dates: start: 19770101
  6. MIYA-BM [Concomitant]
     Route: 048
     Dates: start: 19770101
  7. HICEE [Concomitant]
     Route: 048
     Dates: start: 19770101
  8. MAGNESIUM OXIDE [Concomitant]
     Route: 048
     Dates: start: 20071112
  9. GLYCYRRHIZA [Concomitant]
     Route: 048
     Dates: start: 20071126
  10. KARY UNI [Concomitant]
     Route: 031
     Dates: start: 20070901
  11. LOXONIN [Concomitant]
     Route: 048
     Dates: start: 20030101
  12. KELNAC [Concomitant]
     Route: 048
     Dates: start: 20080129
  13. DEPAS [Concomitant]
     Route: 048
     Dates: start: 19770101

REACTIONS (1)
  - CATARACT [None]
